FAERS Safety Report 5613178-9 (Version None)
Quarter: 2008Q1

REPORT INFORMATION
  Report Type: 
  Country: None (occurrence: None)
  Receive Date: 20080129
  Receipt Date: 20080122
  Transmission Date: 20080703
  Serious: Yes (Other)
  Sender: FDA-Public Use
  Company Number: THQ2008A00227

PATIENT
  Sex: Female

DRUGS (1)
  1. ZOTON (LANSOPRAZOLE) (SUSPENSION) [Suspect]
     Indication: HIATUS HERNIA

REACTIONS (3)
  - CONTUSION [None]
  - ERYTHEMA [None]
  - VAGINAL HAEMORRHAGE [None]
